FAERS Safety Report 24992240 (Version 2)
Quarter: 2025Q1

REPORT INFORMATION
  Report Type: Spontaneous
  Country: JP (occurrence: JP)
  Receive Date: 20250220
  Receipt Date: 20250325
  Transmission Date: 20250409
  Serious: Yes (Hospitalization, Other)
  Sender: MERCK SHARP & DOHME LLC
  Company Number: JP-MSD-M2023-42114

PATIENT
  Age: 7 Decade
  Sex: Female
  Weight: 70 kg

DRUGS (13)
  1. KEYTRUDA [Suspect]
     Active Substance: PEMBROLIZUMAB
     Indication: Endometrial adenocarcinoma
     Dosage: DOSE DESCRIPTION : 200 MILLIGRAM, Q3W?DAILY DOSE : 9.4 MILLIGRAM?REGIMEN DOSE : 200  MILLIGRAM
     Route: 041
     Dates: start: 20230630, end: 202402
  2. KEYTRUDA [Suspect]
     Active Substance: PEMBROLIZUMAB
     Indication: Endometrial adenocarcinoma
     Route: 041
     Dates: start: 20240510, end: 20240722
  3. KEYTRUDA [Suspect]
     Active Substance: PEMBROLIZUMAB
     Indication: Endometrial adenocarcinoma
     Route: 041
     Dates: start: 20240816, end: 20240816
  4. LENVATINIB MESYLATE [Suspect]
     Active Substance: LENVATINIB MESYLATE
     Indication: Endometrial adenocarcinoma
     Dosage: DOSE DESCRIPTION : 20 MILLIGRAM, QD?DAILY DOSE : 20 MILLIGRAM?CONCENTRATION: 20 MILLIGRAM
     Route: 048
     Dates: start: 20230927, end: 202401
  5. LENVATINIB MESYLATE [Suspect]
     Active Substance: LENVATINIB MESYLATE
     Indication: Endometrial adenocarcinoma
     Route: 048
     Dates: start: 2024, end: 202402
  6. LENVATINIB MESYLATE [Suspect]
     Active Substance: LENVATINIB MESYLATE
     Indication: Endometrial adenocarcinoma
     Dosage: DOSE DESCRIPTION : 10 MILLIGRAM, QD?DAILY DOSE : 10 MILLIGRAM
     Route: 048
     Dates: start: 2024, end: 2024
  7. LENVATINIB MESYLATE [Suspect]
     Active Substance: LENVATINIB MESYLATE
     Indication: Endometrial adenocarcinoma
     Dosage: DOSE DESCRIPTION : 10 MILLIGRAM, 5 X PER WEEK?DAILY DOSE : 7.14 MILLIGRAM?REGIMEN DOSE : 10  MILL...
     Route: 048
     Dates: start: 2024, end: 20240511
  8. LENVATINIB MESYLATE [Suspect]
     Active Substance: LENVATINIB MESYLATE
     Indication: Endometrial adenocarcinoma
     Dosage: DOSE DESCRIPTION : 8 MILLIGRAM, 5 X PER WEEK?DAILY DOSE : 5.712 MILLIGRAM?REGIMEN DOSE : 8  MILLI...
     Route: 048
     Dates: start: 20240515, end: 2024
  9. LENVATINIB MESYLATE [Suspect]
     Active Substance: LENVATINIB MESYLATE
     Indication: Endometrial adenocarcinoma
     Dosage: DOSE DESCRIPTION : 8 MILLIGRAM, QD?DAILY DOSE : 8 MILLIGRAM
     Route: 048
     Dates: start: 2024, end: 2024
  10. LENVATINIB MESYLATE [Suspect]
     Active Substance: LENVATINIB MESYLATE
     Indication: Endometrial adenocarcinoma
     Dosage: DOSE DESCRIPTION : 10 MILLIGRAM, 5 X PER WEEK?DAILY DOSE : 7.14 MILLIGRAM?REGIMEN DOSE : 10  MILL...
     Route: 048
     Dates: start: 202408, end: 202408
  11. LENVATINIB MESYLATE [Suspect]
     Active Substance: LENVATINIB MESYLATE
     Indication: Endometrial adenocarcinoma
     Route: 048
     Dates: start: 202408, end: 2024
  12. LENVATINIB MESYLATE [Suspect]
     Active Substance: LENVATINIB MESYLATE
     Indication: Endometrial adenocarcinoma
     Route: 048
     Dates: start: 20240917
  13. LOXOPROFEN SODIUM DIHYDRATE [Concomitant]
     Active Substance: LOXOPROFEN SODIUM DIHYDRATE
     Indication: Neuritis
     Route: 065

REACTIONS (28)
  - Malignant neoplasm progression [Unknown]
  - Electrocardiogram ST segment depression [Unknown]
  - Defect conduction intraventricular [Unknown]
  - Shock [Recovering/Resolving]
  - Nephropathy toxic [Unknown]
  - Hypothyroidism [Unknown]
  - Nausea [Unknown]
  - Weight decreased [Unknown]
  - Acute kidney injury [Unknown]
  - Immune-mediated adrenal insufficiency [Recovering/Resolving]
  - Ureteric stenosis [Unknown]
  - Hydronephrosis [Unknown]
  - Electrocardiogram QT prolonged [Recovering/Resolving]
  - Decreased appetite [Unknown]
  - Dehydration [Recovering/Resolving]
  - Eastern Cooperative Oncology Group performance status worsened [Unknown]
  - Palmar-plantar erythrodysaesthesia syndrome [Unknown]
  - Infusion related reaction [Recovering/Resolving]
  - Hyponatraemia [Unknown]
  - Constipation [Recovered/Resolved]
  - Diarrhoea [Unknown]
  - Cancer pain [Unknown]
  - Depressive symptom [Unknown]
  - Cystitis bacterial [Unknown]
  - Headache [Unknown]
  - Hypertension [Recovered/Resolved]
  - Malaise [Unknown]
  - Therapeutic product effect incomplete [Unknown]

NARRATIVE: CASE EVENT DATE: 20230901
